FAERS Safety Report 15553763 (Version 1)
Quarter: 2018Q4

REPORT INFORMATION
  Report Type: Spontaneous
  Country: US (occurrence: US)
  Receive Date: 20181026
  Receipt Date: 20181026
  Transmission Date: 20190205
  Serious: Yes (Other)
  Sender: FDA-Public Use
  Company Number: US-SA-2018SA294611

PATIENT

DRUGS (2)
  1. MOZOBIL [Suspect]
     Active Substance: PLERIXAFOR
     Route: 058
  2. ONDANSETRON [Suspect]
     Active Substance: ONDANSETRON

REACTIONS (1)
  - Anaphylactic reaction [Unknown]
